FAERS Safety Report 4484859-8 (Version None)
Quarter: 2004Q4

REPORT INFORMATION
  Report Type: 
  Country: None (occurrence: None)
  Receive Date: 20041025
  Receipt Date: 20040924
  Transmission Date: 20050328
  Serious: Yes (Hospitalization)
  Sender: FDA-Public Use
  Company Number: JP-MERCK-0409USA02241

PATIENT
  Age: 82 Year
  Sex: Female
  Weight: 31 kg

DRUGS (7)
  1. COZAAR [Suspect]
     Indication: HYPERTENSION
     Route: 048
     Dates: start: 20040506, end: 20040819
  2. COZAAR [Suspect]
     Route: 048
     Dates: start: 20041009
  3. GLIMICRON [Suspect]
     Indication: DIABETES MELLITUS
     Route: 048
     Dates: start: 20030724, end: 20040819
  4. QUINAPRIL HYDROCHLORIDE [Suspect]
     Indication: HYPERTENSION
     Route: 048
     Dates: start: 20030724, end: 20040819
  5. EBASTEL [Concomitant]
     Indication: PRURITUS
     Route: 048
     Dates: start: 20031009, end: 20040819
  6. RHYTHMY [Concomitant]
     Indication: INSOMNIA
     Route: 048
     Dates: start: 20030814, end: 20040819
  7. LANDEL [Suspect]
     Indication: HYPERTENSION
     Route: 048
     Dates: start: 20040819, end: 20040830

REACTIONS (8)
  - ALANINE AMINOTRANSFERASE INCREASED [None]
  - ASPARTATE AMINOTRANSFERASE INCREASED [None]
  - CONDITION AGGRAVATED [None]
  - DERMATITIS EXFOLIATIVE [None]
  - HEPATIC FUNCTION ABNORMAL [None]
  - LYMPHOCYTE STIMULATION TEST NEGATIVE [None]
  - PRURITUS [None]
  - SKIN DISORDER [None]
